FAERS Safety Report 5927621-9 (Version None)
Quarter: 2008Q4

REPORT INFORMATION
  Report Type: 
  Country: None (occurrence: None)
  Receive Date: 20081023
  Receipt Date: 20081013
  Transmission Date: 20090506
  Serious: Yes (Other)
  Sender: FDA-Public Use
  Company Number: US-ROCHE-585940

PATIENT
  Sex: Female
  Weight: 37.2 kg

DRUGS (1)
  1. CAPECITABINE [Suspect]
     Dosage: DOSAGE: 1 WEEK ON 1 WEEK OFF
     Route: 065
     Dates: start: 20080714, end: 20080912

REACTIONS (1)
  - DISEASE PROGRESSION [None]
